FAERS Safety Report 13618538 (Version 4)
Quarter: 2017Q3

REPORT INFORMATION
  Report Type: Spontaneous
  Country: FR (occurrence: FR)
  Receive Date: 20170606
  Receipt Date: 20170718
  Transmission Date: 20171127
  Serious: Yes (Hospitalization, Other)
  Sender: FDA-Public Use
  Company Number: FR-PFIZER INC-2017238739

PATIENT
  Age: 61 Year
  Sex: Female

DRUGS (27)
  1. ZINC OXIDE. [Suspect]
     Active Substance: ZINC OXIDE
     Dosage: UNK
     Route: 042
     Dates: start: 20170127, end: 20170130
  2. PANTOPRAZOLE [Suspect]
     Active Substance: PANTOPRAZOLE
     Dosage: UNK
     Route: 048
     Dates: start: 20161001
  3. KIVEXA [Suspect]
     Active Substance: ABACAVIR SULFATE\LAMIVUDINE
     Indication: ACQUIRED IMMUNODEFICIENCY SYNDROME
     Dosage: UNK
     Route: 048
     Dates: start: 20161229
  4. PREZISTA [Concomitant]
     Active Substance: DARUNAVIR ETHANOLATE
     Indication: HIV INFECTION
     Dosage: UNK
     Route: 048
     Dates: start: 20161008, end: 20170109
  5. RIMIFON [Concomitant]
     Active Substance: ISONIAZID
     Indication: ATYPICAL MYCOBACTERIAL INFECTION
     Dosage: UNK
     Route: 048
     Dates: start: 20161008, end: 20161020
  6. ANSATIPINE [Suspect]
     Active Substance: RIFABUTIN
     Indication: ATYPICAL MYCOBACTERIAL INFECTION
     Dosage: UNK
     Route: 048
     Dates: start: 20170110
  7. ISENTRESS [Suspect]
     Active Substance: RALTEGRAVIR POTASSIUM
     Dosage: UNK
     Route: 048
     Dates: start: 20161008
  8. DAPTOMYCIN. [Concomitant]
     Active Substance: DAPTOMYCIN
     Dosage: UNK
     Route: 042
     Dates: start: 20161227, end: 20170105
  9. TRUVADA [Concomitant]
     Active Substance: EMTRICITABINE\TENOFOVIR DISOPROXIL FUMARATE
     Indication: HIV INFECTION
     Dosage: UNK
     Route: 048
     Dates: start: 201610, end: 20161228
  10. LEDERFOLINE [Suspect]
     Active Substance: LEUCOVORIN CALCIUM
     Dosage: UNK
     Route: 048
     Dates: start: 201611
  11. ZECLAR [Suspect]
     Active Substance: CLARITHROMYCIN
     Indication: ATYPICAL MYCOBACTERIAL INFECTION
     Dosage: UNK
     Route: 048
     Dates: start: 20161008
  12. TIORFAN [Suspect]
     Active Substance: RACECADOTRIL
     Dosage: UNK
     Route: 048
     Dates: start: 201610
  13. NORVIR [Concomitant]
     Active Substance: RITONAVIR
     Indication: HIV INFECTION
     Dosage: UNK
     Route: 048
     Dates: start: 20161008, end: 20170109
  14. DALACINE [Suspect]
     Active Substance: CLINDAMYCIN HYDROCHLORIDE
     Indication: CEREBRAL TOXOPLASMOSIS
     Dosage: UNK
     Route: 042
     Dates: start: 20170102
  15. ROVALCYTE [Suspect]
     Active Substance: VALGANCICLOVIR HYDROCHLORIDE
     Indication: HERPES SIMPLEX
     Dosage: UNK
     Route: 048
     Dates: start: 20161002
  16. ZOPHREN [Suspect]
     Active Substance: ONDANSETRON
     Dosage: UNK
     Route: 048
     Dates: start: 201611
  17. SELENIUM SULFIDE. [Suspect]
     Active Substance: SELENIUM SULFIDE
     Dosage: UNK
     Route: 042
     Dates: start: 20170127, end: 20170201
  18. BACTRIM [Concomitant]
     Active Substance: SULFAMETHOXAZOLE\TRIMETHOPRIM
     Indication: ANTIBIOTIC PROPHYLAXIS
     Dosage: UNK
     Route: 048
     Dates: start: 20160930, end: 20161009
  19. KEPPRA [Concomitant]
     Active Substance: LEVETIRACETAM
     Indication: DYSKINESIA
     Dosage: UNK
     Route: 048
     Dates: start: 20170103, end: 20170117
  20. WELLVONE [Suspect]
     Active Substance: ATOVAQUONE
     Indication: ANTIBIOTIC PROPHYLAXIS
     Dosage: UNK
     Route: 048
     Dates: start: 20161009
  21. LEVOTHYROX [Concomitant]
     Active Substance: LEVOTHYROXINE
     Indication: HYPOTHYROIDISM
     Dosage: UNK
     Route: 048
  22. LOVENOX [Concomitant]
     Active Substance: ENOXAPARIN SODIUM
     Dosage: UNK
     Route: 058
     Dates: start: 20170103, end: 20170103
  23. MYAMBUTOL [Suspect]
     Active Substance: ETHAMBUTOL HYDROCHLORIDE
     Indication: ATYPICAL MYCOBACTERIAL INFECTION
     Dosage: UNK
     Route: 048
     Dates: start: 20161008
  24. CEFAZOLIN [Concomitant]
     Active Substance: CEFAZOLIN
     Dosage: UNK
     Route: 042
     Dates: start: 20170105, end: 20170105
  25. AMLOR [Concomitant]
     Active Substance: AMLODIPINE BESYLATE
     Dosage: UNK
     Route: 048
  26. LAROSCORBINE [Suspect]
     Active Substance: ASCORBIC ACID
     Indication: FATIGUE
     Dosage: UNK
     Route: 042
     Dates: start: 20170127, end: 20170205
  27. MALOCIDE [Suspect]
     Active Substance: PYRIMETHAMINE
     Indication: CEREBRAL TOXOPLASMOSIS
     Dosage: UNK
     Route: 048
     Dates: start: 20170102

REACTIONS (3)
  - Toxic skin eruption [Recovering/Resolving]
  - Rash [Recovering/Resolving]
  - Liver injury [Recovered/Resolved]

NARRATIVE: CASE EVENT DATE: 201702
